FAERS Safety Report 7890069-4 (Version None)
Quarter: 2011Q4

REPORT INFORMATION
  Report Type: 
  Country: None (occurrence: None)
  Receive Date: 20111103
  Receipt Date: 20111102
  Transmission Date: 20120403
  Serious: Yes (Other)
  Sender: FDA-Public Use
  Company Number: US-ROCHE-784656

PATIENT
  Sex: Male
  Weight: 63.56 kg

DRUGS (3)
  1. ACCUTANE [Suspect]
     Route: 065
  2. ACCUTANE [Suspect]
     Indication: ACNE
     Route: 065
     Dates: start: 19950101, end: 19980101
  3. ACCUTANE [Suspect]
     Route: 065
     Dates: start: 20000501, end: 20001101

REACTIONS (9)
  - IRRITABLE BOWEL SYNDROME [None]
  - MIGRAINE [None]
  - DEPRESSION [None]
  - EMOTIONAL DISTRESS [None]
  - CROHN'S DISEASE [None]
  - COLITIS ULCERATIVE [None]
  - MUSCULOSKELETAL DISORDER [None]
  - INFLAMMATORY BOWEL DISEASE [None]
  - ECZEMA [None]
